FAERS Safety Report 9894341 (Version 2)
Quarter: 2014Q1

REPORT INFORMATION
  Report Type: Spontaneous
  Country: IT (occurrence: IT)
  Receive Date: 20140213
  Receipt Date: 20140219
  Transmission Date: 20141002
  Serious: Yes (Hospitalization)
  Sender: FDA-Public Use
  Company Number: IT-JNJFOC-20140203135

PATIENT
  Age: 9 Year
  Sex: Female
  Weight: 32 kg

DRUGS (3)
  1. SERENASE [Suspect]
     Indication: SYDENHAM^S CHOREA
     Dosage: 2 MG/ML
     Route: 048
  2. SERENASE [Suspect]
     Indication: SYDENHAM^S CHOREA
     Dosage: 10 MG/ML
     Route: 048
     Dates: start: 20131021, end: 20131025
  3. DIAMINOCILLINA [Suspect]
     Indication: SYDENHAM^S CHOREA
     Route: 030

REACTIONS (7)
  - Crying [Recovered/Resolved]
  - Face oedema [Recovered/Resolved]
  - Tongue oedema [Recovered/Resolved]
  - Torticollis [Recovered/Resolved]
  - Tremor [Recovered/Resolved]
  - Oromandibular dystonia [Recovered/Resolved]
  - Incorrect dose administered [Unknown]
